FAERS Safety Report 4564254-3 (Version None)
Quarter: 2005Q1

REPORT INFORMATION
  Report Type: 
  Country: None (occurrence: None)
  Receive Date: 20050126
  Receipt Date: 20050117
  Transmission Date: 20050727
  Serious: Yes (Hospitalization)
  Sender: FDA-Public Use
  Company Number: 2004-11-1669

PATIENT
  Sex: Female

DRUGS (3)
  1. VIRAFERON (INTERFERON ALFA-2B) INJECTABLE SOLUTION [Suspect]
     Indication: HEPATITIS C
     Dosage: SUBCUTANEOUS
     Route: 058
     Dates: start: 20020131, end: 20040728
  2. REBETOL [Suspect]
     Indication: HEPATITIS C
     Dosage: 1000MG QD ORAL
     Route: 048
     Dates: start: 20020131, end: 20040728
  3. MANTADIX CAPSULES [Concomitant]

REACTIONS (12)
  - ALVEOLITIS [None]
  - ASTHENIA [None]
  - EMPHYSEMA [None]
  - HYPERCALCAEMIA [None]
  - KERATOCONJUNCTIVITIS SICCA [None]
  - RENAL FAILURE [None]
  - RHEUMATOID FACTOR POSITIVE [None]
  - SARCOIDOSIS [None]
  - SIALOADENITIS [None]
  - UVEITIS [None]
  - VIRAL LOAD INCREASED [None]
  - WEIGHT DECREASED [None]
